FAERS Safety Report 12154224 (Version 1)
Quarter: 2016Q1

REPORT INFORMATION
  Report Type: Spontaneous
  Country: US (occurrence: None)
  Receive Date: 20160304
  Receipt Date: 20160304
  Transmission Date: 20160526
  Serious: No
  Sender: FDA-Public Use
  Company Number: None

PATIENT
  Age: 68 Year
  Sex: Female

DRUGS (1)
  1. FORTEO [Suspect]
     Active Substance: TERIPARATIDE
     Indication: SENILE OSTEOPOROSIS
     Route: 058
     Dates: start: 20160213, end: 20160229

REACTIONS (5)
  - Chest pain [None]
  - Back pain [None]
  - Abdominal pain upper [None]
  - Headache [None]
  - Pain [None]

NARRATIVE: CASE EVENT DATE: 20160301
